FAERS Safety Report 10342535 (Version 1)
Quarter: 2014Q3

REPORT INFORMATION
  Report Type: Report from Study
  Country: US (occurrence: US)
  Receive Date: 20140725
  Receipt Date: 20140725
  Transmission Date: 20150326
  Serious: Yes (Other)
  Sender: FDA-Public Use
  Company Number: US-SA-2014SA097469

PATIENT
  Age: 63 Year
  Sex: Female

DRUGS (6)
  1. LANTUS [Suspect]
     Active Substance: INSULIN GLARGINE
     Indication: TYPE 2 DIABETES MELLITUS
     Dosage: DOSE: 50 AT AM, 45 AT PM?DAILY DOSE: 95
     Route: 065
  2. SYMBICORT [Concomitant]
     Active Substance: BUDESONIDE\FORMOTEROL FUMARATE DIHYDRATE
  3. DILTIAZEM [Concomitant]
     Active Substance: DILTIAZEM
  4. LANTUS [Suspect]
     Active Substance: INSULIN GLARGINE
     Indication: TYPE 2 DIABETES MELLITUS
     Route: 065
     Dates: start: 2009
  5. NOVOLOG [Concomitant]
     Active Substance: INSULIN ASPART
  6. IPRATROPIUM BROMIDE/SALBUTAMOL SULFATE [Concomitant]

REACTIONS (2)
  - Cardiac disorder [Not Recovered/Not Resolved]
  - Off label use [Unknown]
